FAERS Safety Report 10779907 (Version 2)
Quarter: 2015Q1

REPORT INFORMATION
  Report Type: Spontaneous
  Country: NO (occurrence: NO)
  Receive Date: 20150210
  Receipt Date: 20150302
  Transmission Date: 20150721
  Serious: Yes (Hospitalization)
  Sender: FDA-Public Use
  Company Number: NO-TEVA-537962ISR

PATIENT
  Sex: Male

DRUGS (14)
  1. PREDNISOLONE. [Suspect]
     Active Substance: PREDNISOLONE
     Indication: DIFFUSE LARGE B-CELL LYMPHOMA
     Dosage: NOT REPORTED
  2. METHYLPREDNISOLONE. [Suspect]
     Active Substance: METHYLPREDNISOLONE
     Indication: TRANSPLANT REJECTION
     Dosage: NOT REPORTED
     Route: 042
  3. INSULIN [Concomitant]
     Active Substance: INSULIN NOS
     Indication: TYPE 1 DIABETES MELLITUS
     Dosage: NOT REPORTED
  4. CYCLOPHOSPHAMIDE. [Suspect]
     Active Substance: CYCLOPHOSPHAMIDE
     Indication: DIFFUSE LARGE B-CELL LYMPHOMA
     Dosage: NOT REPORTED
  5. DOXORUBICIN [Suspect]
     Active Substance: DOXORUBICIN
     Indication: DIFFUSE LARGE B-CELL LYMPHOMA
     Dosage: NOT REPORTED
  6. ASPIRIN. [Concomitant]
     Active Substance: ASPIRIN
     Indication: PRODUCT USED FOR UNKNOWN INDICATION
     Dosage: NOT REPORTED
  7. EMTRICITABINE [Concomitant]
     Active Substance: EMTRICITABINE
     Indication: HEPATITIS B
     Dosage: NOT REPORTED
  8. VINCRISTINE [Suspect]
     Active Substance: VINCRISTINE
     Indication: DIFFUSE LARGE B-CELL LYMPHOMA
     Dosage: NOT REPORTED
  9. SULFAMETHOXAZOLE AND TRIMETHOPRIM [Concomitant]
     Active Substance: SULFAMETHOXAZOLE\TRIMETHOPRIM
     Indication: PROPHYLAXIS
     Dosage: NOT REPORTED
  10. ANTIHYPERTENSIVES [Concomitant]
     Active Substance: UNSPECIFIED INGREDIENT
     Indication: HYPERTENSION
     Dosage: NOT REPORTED
  11. TACROLIMUS. [Suspect]
     Active Substance: TACROLIMUS
     Indication: PRODUCT USED FOR UNKNOWN INDICATION
     Dosage: NOT REPORTED
  12. RITUXIMAB [Suspect]
     Active Substance: RITUXIMAB
     Indication: DIFFUSE LARGE B-CELL LYMPHOMA
     Dosage: NOT REPORTED
  13. ANTITHYMOCYTE IMMUNOGLOBULIN (RABBIT) [Suspect]
     Active Substance: LAPINE T-LYMPHOCYTE IMMUNE GLOBULIN
     Indication: TRANSPLANT REJECTION
     Dosage: NOT REPORTED
  14. MYCOPHENOLIC ACID. [Suspect]
     Active Substance: MYCOPHENOLIC ACID
     Indication: PRODUCT USED FOR UNKNOWN INDICATION
     Dosage: NOT REPORTED

REACTIONS (2)
  - Infection reactivation [Recovered/Resolved]
  - Strongyloidiasis [Recovered/Resolved]
